FAERS Safety Report 24931960 (Version 1)
Quarter: 2025Q1

REPORT INFORMATION
  Report Type: Report from Study
  Country: US (occurrence: US)
  Receive Date: 20250205
  Receipt Date: 20250205
  Transmission Date: 20250408
  Serious: No
  Sender: EXELIXIS
  Company Number: US-EXELIXIS-CABO-24079267

PATIENT
  Sex: Female
  Weight: 63.95 kg

DRUGS (1)
  1. CABOMETYX [Suspect]
     Active Substance: CABOZANTINIB S-MALATE
     Indication: Renal cancer
     Dosage: 40 MG, QD
     Route: 048
     Dates: start: 20240427

REACTIONS (4)
  - Taste disorder [Unknown]
  - Rash [Recovering/Resolving]
  - Diarrhoea [Recovering/Resolving]
  - Dry mouth [Unknown]
